FAERS Safety Report 9013425 (Version 1)
Quarter: 2013Q1

REPORT INFORMATION
  Report Type: Spontaneous
  Country: US (occurrence: US)
  Receive Date: 20130114
  Receipt Date: 20130114
  Transmission Date: 20140127
  Serious: Yes (Other)
  Sender: FDA-Public Use
  Company Number: US-ASTRAZENECA-2013SE01100

PATIENT
  Age: 48 Year
  Sex: Male
  Weight: 124.7 kg

DRUGS (16)
  1. LISINOPRIL [Suspect]
     Indication: BLOOD PRESSURE ABNORMAL
     Route: 048
  2. SEROQUEL [Suspect]
     Indication: SLEEP DISORDER
     Route: 048
     Dates: start: 2006
  3. SEROQUEL [Suspect]
     Indication: SLEEP DISORDER
     Dosage: GENERIC
     Route: 048
  4. SEROQUEL [Suspect]
     Indication: SLEEP DISORDER
     Route: 048
     Dates: start: 2012
  5. SEROQUEL [Suspect]
     Indication: SLEEP DISORDER
     Route: 048
  6. SEROQUEL [Suspect]
     Indication: SLEEP DISORDER
     Route: 048
  7. CARBAMAZEPINE (PRASCO) [Concomitant]
     Indication: MOOD ALTERED
     Dates: start: 2012
  8. CARBAMAZEPINE (PRASCO) [Concomitant]
     Indication: CONVULSION
     Dates: start: 2012
  9. RISPERIDONE [Concomitant]
     Indication: MOOD ALTERED
     Dates: start: 2012
  10. MULTIVITAMIN [Concomitant]
     Dosage: DAILY
  11. METFORMIN [Concomitant]
     Indication: BLOOD GLUCOSE INCREASED
  12. METOPROLOL ER (WATSON) [Concomitant]
     Indication: BLOOD PRESSURE
     Dates: start: 2012
  13. INSULIN [Concomitant]
  14. B COMPLEX [Concomitant]
     Indication: ILL-DEFINED DISORDER
     Dates: start: 2012
  15. BENZOTROPINE (PAR) [Concomitant]
     Indication: ADVERSE DRUG REACTION
     Dates: start: 2012
  16. CYCLOBENZAPINE [Concomitant]
     Indication: PAIN
     Dosage: PRN

REACTIONS (9)
  - Fall [Unknown]
  - Convulsion [Unknown]
  - Blood pressure abnormal [Unknown]
  - Weight decreased [Unknown]
  - Pain [Unknown]
  - Weight increased [Unknown]
  - Blood glucose increased [Unknown]
  - Somnolence [Unknown]
  - Off label use [Unknown]
